FAERS Safety Report 9777955 (Version 3)
Quarter: 2014Q1

REPORT INFORMATION
  Report Type: Spontaneous
  Country: US (occurrence: US)
  Receive Date: 20131223
  Receipt Date: 20140128
  Transmission Date: 20141002
  Serious: Yes (Hospitalization, Other)
  Sender: FDA-Public Use
  Company Number: US-MERCK-1312USA009943

PATIENT
  Sex: Female

DRUGS (1)
  1. ZOLINZA [Suspect]
     Indication: T-CELL LYMPHOMA
     Dosage: UNK
     Route: 048
     Dates: start: 201311, end: 2013

REACTIONS (7)
  - Encephalopathy [Not Recovered/Not Resolved]
  - Confusional state [Not Recovered/Not Resolved]
  - White matter lesion [Not Recovered/Not Resolved]
  - Mental impairment [Not Recovered/Not Resolved]
  - Asthenia [Not Recovered/Not Resolved]
  - Central nervous system neoplasm [Unknown]
  - Mental status changes [Unknown]
